FAERS Safety Report 7577923-8 (Version None)
Quarter: 2011Q2

REPORT INFORMATION
  Report Type: 
  Country: None (occurrence: None)
  Receive Date: 20110628
  Receipt Date: 20110615
  Transmission Date: 20111010
  Serious: Yes (Hospitalization)
  Sender: FDA-Public Use
  Company Number: JP-ROCHE-782397

PATIENT
  Sex: Female
  Weight: 42 kg

DRUGS (7)
  1. HERCEPTIN [Suspect]
     Dosage: DOSAGE IS UNCERTAIN.
     Route: 041
     Dates: start: 20110526
  2. HERCEPTIN [Suspect]
     Route: 041
     Dates: start: 20091126, end: 20091126
  3. XELODA [Suspect]
     Indication: BREAST CANCER METASTATIC
     Dosage: DOSAGE IS UNCERTAIN
     Route: 048
     Dates: start: 20090908, end: 20091008
  4. HERCEPTIN [Suspect]
     Route: 041
     Dates: start: 20091224, end: 20091224
  5. HERCEPTIN [Suspect]
     Indication: BREAST CANCER METASTATIC
     Route: 041
     Dates: start: 20091008, end: 20091008
  6. HERCEPTIN [Suspect]
     Route: 041
     Dates: start: 20091106, end: 20091106
  7. HERCEPTIN [Suspect]
     Route: 041
     Dates: start: 20100407, end: 20100407

REACTIONS (1)
  - COLITIS ULCERATIVE [None]
